FAERS Safety Report 8258157-0 (Version None)
Quarter: 2012Q2

REPORT INFORMATION
  Report Type: 
  Country: None (occurrence: None)
  Receive Date: 20120403
  Receipt Date: 20120403
  Transmission Date: 20120825
  Serious: Yes (Other)
  Sender: FDA-Public Use
  Company Number: None

PATIENT
  Sex: Female
  Weight: 114.76 kg

DRUGS (1)
  1. NOVOLOG MIX 70/30 [Suspect]
     Indication: BLOOD GLUCOSE ABNORMAL
     Dosage: 30 UNITS AM/PM   END OF FEB TO 2 WK MARCH 2012

REACTIONS (4)
  - THERAPEUTIC RESPONSE UNEXPECTED [None]
  - ABDOMINAL DISTENSION [None]
  - HEADACHE [None]
  - OEDEMA PERIPHERAL [None]
